FAERS Safety Report 9313591 (Version 1)
Quarter: 2013Q2

REPORT INFORMATION
  Report Type: Spontaneous
  Country: FR (occurrence: FR)
  Receive Date: 20130528
  Receipt Date: 20130528
  Transmission Date: 20140414
  Serious: Yes (Death)
  Sender: FDA-Public Use
  Company Number: FR-B.I. PHARMACEUTICALS,INC./RIDGEFIELD-2013-FF-01428FF

PATIENT
  Age: 68 Year
  Sex: Female

DRUGS (13)
  1. SPIRIVA [Suspect]
     Route: 055
  2. DOGMATIL [Suspect]
     Dosage: 150 MG
     Route: 048
     Dates: start: 20130318, end: 20130405
  3. TEMERIT [Suspect]
     Route: 048
     Dates: start: 20130315
  4. CYMBALTA [Suspect]
     Route: 048
     Dates: start: 20130315, end: 20130405
  5. CACIT VITAMINE D3 [Suspect]
     Route: 048
  6. PARIET [Suspect]
     Route: 048
  7. CRESTOR [Suspect]
     Route: 048
  8. XANAX [Concomitant]
     Route: 048
     Dates: start: 20130315
  9. DIFFU K [Concomitant]
     Route: 048
     Dates: start: 20130307
  10. SPECIAFOLDINE [Concomitant]
     Route: 048
     Dates: start: 20130307
  11. NOCTAMIDE [Concomitant]
     Route: 048
  12. SERETIDE DISKUS [Concomitant]
     Dosage: 250/50 MCG/DOSE
  13. KARDEGIC [Concomitant]
     Route: 048

REACTIONS (2)
  - Intestinal obstruction [Fatal]
  - Pneumonia aspiration [Fatal]
